FAERS Safety Report 10705800 (Version 1)
Quarter: 2015Q1

REPORT INFORMATION
  Report Type: Spontaneous
  Country: US (occurrence: US)
  Receive Date: 20150112
  Receipt Date: 20150112
  Transmission Date: 20150721
  Serious: No
  Sender: FDA-Public Use
  Company Number: US-GLAXOSMITHKLINE-US2014030136

PATIENT
  Age: 53 Year
  Sex: Female

DRUGS (5)
  1. ADVAIR DISKUS [Suspect]
     Active Substance: FLUTICASONE PROPIONATE\SALMETEROL XINAFOATE
     Indication: ASTHMA
     Dosage: 100/50
     Route: 055
     Dates: start: 2012
  2. ADVAIR DISKUS [Suspect]
     Active Substance: FLUTICASONE PROPIONATE\SALMETEROL XINAFOATE
     Dosage: 250/50 MCG
     Dates: start: 201403
  3. PROVENTIL HFA [Concomitant]
     Active Substance: ALBUTEROL SULFATE
  4. INSULIN [Concomitant]
     Active Substance: INSULIN NOS
  5. PREDNISONE. [Concomitant]
     Active Substance: PREDNISONE

REACTIONS (6)
  - Wheezing [Recovered/Resolved]
  - Extra dose administered [Unknown]
  - Feeling abnormal [Recovering/Resolving]
  - Asthma [Recovered/Resolved]
  - Oropharyngeal pain [Recovered/Resolved]
  - Multiple allergies [Unknown]

NARRATIVE: CASE EVENT DATE: 201303
